FAERS Safety Report 12179663 (Version 3)
Quarter: 2016Q2

REPORT INFORMATION
  Report Type: Spontaneous
  Country: US (occurrence: US)
  Receive Date: 20160315
  Receipt Date: 20160413
  Transmission Date: 20160815
  Serious: Yes (Death)
  Sender: FDA-Public Use
  Company Number: US-BEH-2016060117

PATIENT
  Sex: Female

DRUGS (3)
  1. CIDOFOVIR. [Suspect]
     Active Substance: CIDOFOVIR
     Indication: ADENOVIRUS INFECTION
     Dosage: DAYS 3 AND 9
     Route: 042
  2. INTRAVENOUS IMMUNOGLOBULIN [Suspect]
     Active Substance: HUMAN IMMUNOGLOBULIN G
     Indication: ADENOVIRUS INFECTION
     Dosage: DAYS 5, 6, 8, 10, 12, 14, 16, 24 AND 31
     Route: 042
  3. ANTIVIRALS NOS [Suspect]
     Active Substance: UNSPECIFIED INGREDIENT
     Indication: ADENOVIRUS INFECTION
     Dosage: DAYS 17, 20, 24, 27 AND 31
     Route: 048

REACTIONS (2)
  - Adenovirus infection [Fatal]
  - Drug ineffective for unapproved indication [Fatal]
